FAERS Safety Report 24301024 (Version 2)
Quarter: 2024Q3

REPORT INFORMATION
  Report Type: Spontaneous
  Country: TW (occurrence: TW)
  Receive Date: 20240910
  Receipt Date: 20240924
  Transmission Date: 20241017
  Serious: Yes (Death)
  Sender: ROCHE
  Company Number: TW-CHUGAI-2024030824

PATIENT
  Age: 90 Year
  Sex: Male
  Weight: 63.1 kg

DRUGS (4)
  1. ACTEMRA [Suspect]
     Active Substance: TOCILIZUMAB
     Indication: Rheumatoid arthritis
     Dosage: 400 MILLIGRAM, ONCE/MONTH
     Route: 042
     Dates: start: 20140127, end: 20240730
  2. HYDROXYCHLOROQUINE SULFATE [Concomitant]
     Active Substance: HYDROXYCHLOROQUINE SULFATE
     Indication: Rheumatoid arthritis
     Dosage: 200 MILLIGRAM, QD
     Route: 050
     Dates: start: 20140127, end: 20240730
  3. ANGINAR [Concomitant]
     Indication: Prophylaxis
     Dosage: 75 MILLIGRAM, HS
     Route: 050
     Dates: start: 20201020, end: 20240730
  4. DAILYCARE ACTIBEST [Concomitant]
     Indication: Prophylaxis
     Dosage: 1 TABLET, QD
     Route: 050
     Dates: start: 20140127, end: 20240730

REACTIONS (2)
  - Aortic valve stenosis [Fatal]
  - Cardiac arrest [Fatal]

NARRATIVE: CASE EVENT DATE: 20240820
